FAERS Safety Report 5404328-8 (Version None)
Quarter: 2007Q3

REPORT INFORMATION
  Report Type: 
  Country: None (occurrence: None)
  Receive Date: 20070802
  Receipt Date: 20070726
  Transmission Date: 20080115
  Serious: Yes (Life-Threatening)
  Sender: FDA-Public Use
  Company Number: JP-PFIZER INC-2007062573

PATIENT
  Age: 61 Year
  Sex: Female

DRUGS (2)
  1. SOLU-CORTEF [Suspect]
     Indication: ASTHMA
     Dosage: DAILY DOSE:300MG
     Route: 042
     Dates: start: 20070714, end: 20070718
  2. NEOPHYLLIN [Concomitant]
     Route: 042

REACTIONS (1)
  - HYPOTENSION [None]
